FAERS Safety Report 7739688-6 (Version None)
Quarter: 2011Q3

REPORT INFORMATION
  Report Type: 
  Country: None (occurrence: None)
  Receive Date: 20110909
  Receipt Date: 20110906
  Transmission Date: 20111222
  Serious: Yes (Other)
  Sender: FDA-Public Use
  Company Number: US-AMGEN-USASP2011044303

PATIENT
  Age: 73 Year
  Sex: Female
  Weight: 48.526 kg

DRUGS (13)
  1. SIMVASTATIN [Concomitant]
     Indication: ARTERIOSCLEROSIS CORONARY ARTERY
     Dosage: 20 MG, UNK
  2. ARANESP [Concomitant]
     Dosage: 200 MUG, UNK
     Dates: start: 20091221
  3. METOPROLOL TARTRATE [Concomitant]
     Indication: ESSENTIAL HYPERTENSION
     Dosage: 25 MG, UNK
  4. PROLIA [Suspect]
     Indication: OSTEOPOROSIS
     Dosage: 60 MG, Q6MO
     Route: 058
     Dates: start: 20110222, end: 20110101
  5. TYLENOL-500 [Concomitant]
     Dosage: 325 MG, UNK
     Dates: start: 20090728
  6. ISOSORBIDE DINITRATE [Concomitant]
     Indication: ARTERIOSCLEROSIS CORONARY ARTERY
     Dosage: 10 MG, BID
  7. NITROSTAT [Concomitant]
     Indication: ARTERIOSCLEROSIS CORONARY ARTERY
     Dosage: 0.4 MG, UNK
     Route: 060
  8. OSTEO BI-FLEX [Concomitant]
     Dosage: UNK UNK, BID
     Dates: start: 20090728
  9. VITAMIN D [Concomitant]
  10. LISINOPRIL [Concomitant]
     Dosage: 5 MG, BID
  11. ASPIRIN [Concomitant]
     Dosage: 81 MG, QD
     Dates: start: 20070326
  12. CYANOCOBALAMIN [Concomitant]
     Dosage: 2000 MUG, QOD
  13. LOMOTIL [Concomitant]
     Indication: IRRITABLE BOWEL SYNDROME
     Dosage: UNK
     Dates: start: 20101115

REACTIONS (2)
  - BRONCHOPULMONARY ASPERGILLOSIS [None]
  - VULVOVAGINAL CANDIDIASIS [None]
